FAERS Safety Report 5243195-2 (Version None)
Quarter: 2007Q1

REPORT INFORMATION
  Report Type: 
  Country: None (occurrence: None)
  Receive Date: 20070215
  Receipt Date: 20070202
  Transmission Date: 20070707
  Serious: Yes (Life-Threatening)
  Sender: FDA-Public Use
  Company Number: NASFR-07-0127

PATIENT
  Age: 60 Year
  Sex: Male
  Weight: 63 kg

DRUGS (10)
  1. NAROPIN [Suspect]
     Indication: LOCAL ANAESTHESIA
     Dosage: 150 MG (ONCE), UNKNOWN
     Dates: start: 20061110, end: 20061110
  2. XYLOCAINE [Suspect]
     Indication: LOCAL ANAESTHESIA
     Dosage: SEE IMAGE
     Dates: start: 20061110, end: 20061110
  3. XYLOCAINE [Suspect]
     Indication: LOCAL ANAESTHESIA
     Dosage: SEE IMAGE
     Dates: start: 20061110, end: 20061110
  4. MIDAZOLAM HCL [Concomitant]
  5. SUFENTANIL (SUFENTANIL) [Concomitant]
  6. SERETIDE (SERETIDE MITE) [Concomitant]
  7. THEOSTAT (THEOPHYLLINE) [Concomitant]
  8. HYZAAR [Concomitant]
  9. LEVOTHYROXINE SODIUM [Concomitant]
  10. PANTOPRAZOLE SODIUM [Concomitant]

REACTIONS (22)
  - ACUTE PULMONARY OEDEMA [None]
  - AGITATION [None]
  - ANGINA UNSTABLE [None]
  - ARRHYTHMIA SUPRAVENTRICULAR [None]
  - BUNDLE BRANCH BLOCK [None]
  - BUNDLE BRANCH BLOCK RIGHT [None]
  - CARDIAC DISORDER [None]
  - EJECTION FRACTION DECREASED [None]
  - ELECTROCARDIOGRAM QRS COMPLEX PROLONGED [None]
  - ELECTROCARDIOGRAM QT PROLONGED [None]
  - ELECTROCARDIOGRAM REPOLARISATION ABNORMALITY [None]
  - ELECTROCARDIOGRAM T WAVE INVERSION [None]
  - HEART RATE INCREASED [None]
  - HYPOTENSION [None]
  - HYPOXIA [None]
  - MALAISE [None]
  - MUSCULOSKELETAL CHEST PAIN [None]
  - MYOCARDIAL ISCHAEMIA [None]
  - OVERDOSE [None]
  - RESPIRATORY DISTRESS [None]
  - TROPONIN INCREASED [None]
  - VENTRICULAR DYSFUNCTION [None]
